FAERS Safety Report 8308799-9 (Version None)
Quarter: 2012Q2

REPORT INFORMATION
  Report Type: 
  Country: None (occurrence: None)
  Receive Date: 20120424
  Receipt Date: 20101028
  Transmission Date: 20120825
  Serious: Yes (Other)
  Sender: FDA-Public Use
  Company Number: US-TEVA-2010005205

PATIENT
  Sex: Female
  Weight: 104.87 kg

DRUGS (3)
  1. ATENOLOL [Concomitant]
     Indication: HYPERTENSION
     Dosage: 50 MILLIGRAM;
     Dates: start: 20100101
  2. BENICAR HCT [Concomitant]
     Indication: HYPERTENSION
     Dates: start: 20100101
  3. PROVIGIL [Suspect]
     Indication: SLEEP APNOEA SYNDROME
     Dosage: 400 MILLIGRAM;
     Route: 048
     Dates: start: 20090701, end: 20090701

REACTIONS (1)
  - BLOOD PRESSURE INCREASED [None]
